FAERS Safety Report 5924153-9 (Version None)
Quarter: 2008Q4

REPORT INFORMATION
  Report Type: 
  Country: None (occurrence: None)
  Receive Date: 20081015
  Receipt Date: 20081006
  Transmission Date: 20090506
  Serious: Yes (Hospitalization, Other)
  Sender: FDA-Public Use
  Company Number: 2008AP002666

PATIENT
  Age: 82 Year
  Sex: Female

DRUGS (3)
  1. SERTRALINE HYDROCHLORIDE [Suspect]
     Indication: DEPRESSION
     Dosage: 100 MG, QD, PO
     Route: 048
     Dates: start: 20080916, end: 20080923
  2. CITALOPRAM HYDROBROMIDE [Concomitant]
  3. MIRTAZAPINE [Concomitant]

REACTIONS (4)
  - AKATHISIA [None]
  - EXTRAPYRAMIDAL DISORDER [None]
  - HYPERTONIA [None]
  - POSTURE ABNORMAL [None]
